FAERS Safety Report 19861565 (Version 1)
Quarter: 2021Q3

REPORT INFORMATION
  Report Type: Spontaneous
  Country: US (occurrence: US)
  Receive Date: 20210920
  Receipt Date: 20210920
  Transmission Date: 20211014
  Serious: No
  Sender: FDA-Public Use
  Company Number: US-009507513-2108USA008092

PATIENT
  Sex: Female

DRUGS (1)
  1. PROVENTIL [Suspect]
     Active Substance: ALBUTEROL
     Dosage: 2 PUFFS, EVERY 3?4 HOURS OR AS NEEDED
     Dates: start: 20210815, end: 20210829

REACTIONS (4)
  - Device malfunction [Unknown]
  - Product delivery mechanism issue [Unknown]
  - Inappropriate schedule of product administration [Unknown]
  - Poor quality device used [Unknown]

NARRATIVE: CASE EVENT DATE: 20210829
